FAERS Safety Report 4821085-4 (Version None)
Quarter: 2005Q4

REPORT INFORMATION
  Report Type: 
  Country: None (occurrence: None)
  Receive Date: 20051104
  Receipt Date: 20050601
  Transmission Date: 20060501
  Serious: Yes (Hospitalization, Other)
  Sender: FDA-Public Use
  Company Number: US-MERCK-0506USA00745

PATIENT
  Age: 44 Year
  Sex: Female
  Weight: 105 kg

DRUGS (3)
  1. VIOXX [Suspect]
     Indication: BACK INJURY
     Route: 048
     Dates: start: 20010715, end: 20011001
  2. VIOXX [Suspect]
     Indication: NECK INJURY
     Route: 048
     Dates: start: 20010715, end: 20011001
  3. VICODIN [Concomitant]
     Indication: PAIN
     Route: 065
     Dates: start: 19890101, end: 20010101

REACTIONS (10)
  - ABDOMINAL PAIN UPPER [None]
  - ANTISOCIAL BEHAVIOUR [None]
  - ANXIETY DISORDER [None]
  - BLADDER DISORDER [None]
  - CEREBROVASCULAR ACCIDENT [None]
  - FIBROMYALGIA [None]
  - GASTRIC ULCER PERFORATION [None]
  - GASTRITIS [None]
  - SLEEP DISORDER [None]
  - UTERINE DISORDER [None]
